FAERS Safety Report 5761231-1 (Version None)
Quarter: 2008Q2

REPORT INFORMATION
  Report Type: 
  Country: None (occurrence: None)
  Receive Date: 20080606
  Receipt Date: 20080530
  Transmission Date: 20081010
  Serious: Yes (Other)
  Sender: FDA-Public Use
  Company Number: PHBS2007BR05601

PATIENT
  Age: 49 Year
  Sex: Female

DRUGS (3)
  1. ESTRADERM [Suspect]
     Indication: IN VITRO FERTILISATION
     Dosage: 200 UG, QD
     Route: 062
     Dates: start: 20070227
  2. CRINONE [Concomitant]
     Indication: IN VITRO FERTILISATION
  3. UNSPECIFIED ANTISEPTIC VAGINAL CREAM [Concomitant]
     Route: 061

REACTIONS (3)
  - ABORTION [None]
  - BLOOD PRESSURE INCREASED [None]
  - DRUG EXPOSURE DURING PREGNANCY [None]
